FAERS Safety Report 7825004-8 (Version None)
Quarter: 2011Q4

REPORT INFORMATION
  Report Type: 
  Country: None (occurrence: None)
  Receive Date: 20111019
  Receipt Date: 20111013
  Transmission Date: 20120403
  Serious: Yes (Hospitalization, Disabling, Other)
  Sender: FDA-Public Use
  Company Number: US-MERCK-1008USA04179

PATIENT
  Age: 63 Year
  Sex: Male

DRUGS (1)
  1. FOSAMAX [Suspect]
     Indication: OSTEOPOROSIS
     Route: 048
     Dates: end: 20100101

REACTIONS (12)
  - GAIT DISTURBANCE [None]
  - FRACTURE NONUNION [None]
  - FEMUR FRACTURE [None]
  - FALL [None]
  - ARTHRALGIA [None]
  - TIBIA FRACTURE [None]
  - TOOTH DISORDER [None]
  - FOOT FRACTURE [None]
  - OSTEONECROSIS OF JAW [None]
  - ANKLE FRACTURE [None]
  - BACK PAIN [None]
  - FRACTURE [None]
